FAERS Safety Report 5714634-5 (Version None)
Quarter: 2008Q2

REPORT INFORMATION
  Report Type: 
  Country: None (occurrence: None)
  Receive Date: 20080423
  Receipt Date: 20080416
  Transmission Date: 20081010
  Serious: Yes (Life-Threatening, Hospitalization)
  Sender: FDA-Public Use
  Company Number: B0517663A

PATIENT
  Age: 35 Year
  Sex: Female

DRUGS (3)
  1. ALBENDAZOLE [Suspect]
     Dosage: 400MG SINGLE DOSE
     Route: 048
     Dates: start: 20070623, end: 20070623
  2. DIETHYLCARBAMAZINE CITRATE [Suspect]
     Dosage: 200MG SINGLE DOSE
     Route: 048
     Dates: start: 20070623, end: 20070623
  3. NO CONCURRENT MEDICATION [Concomitant]

REACTIONS (4)
  - DIZZINESS [None]
  - GASTRITIS [None]
  - LETHARGY [None]
  - VOMITING [None]
